FAERS Safety Report 25270372 (Version 1)
Quarter: 2025Q2

REPORT INFORMATION
  Report Type: Spontaneous
  Country: CN (occurrence: CN)
  Receive Date: 20250505
  Receipt Date: 20250505
  Transmission Date: 20250716
  Serious: Yes (Hospitalization, Disabling)
  Sender: PFIZER
  Company Number: CN-PFIZER INC-PV202500050845

PATIENT
  Age: 22 Year
  Sex: Female
  Weight: 94.4 kg

DRUGS (5)
  1. CYTARABINE [Suspect]
     Active Substance: CYTARABINE
     Indication: Acute myeloid leukaemia
     Dosage: 6 G, 2X/DAY
     Route: 041
     Dates: start: 20250320, end: 20250320
  2. CYTARABINE [Suspect]
     Active Substance: CYTARABINE
     Dosage: 6 G, 2X/DAY
     Route: 041
     Dates: start: 20250322, end: 20250322
  3. CYTARABINE [Suspect]
     Active Substance: CYTARABINE
     Dosage: 6 G, 2X/DAY
     Route: 041
     Dates: start: 20250324, end: 20250324
  4. METHOTREXATE [Suspect]
     Active Substance: METHOTREXATE
     Indication: Acute myeloid leukaemia
     Dosage: 10 MG, 1X/DAY
     Route: 037
     Dates: start: 20250319, end: 20250319
  5. DEXAMETHASONE SODIUM PHOSPHATE [Concomitant]
     Active Substance: DEXAMETHASONE SODIUM PHOSPHATE
     Indication: Acute myeloid leukaemia
     Dosage: 5 MG, 1X/DAY
     Route: 037
     Dates: start: 20250319, end: 20250319

REACTIONS (8)
  - Myelosuppression [Recovering/Resolving]
  - Toothache [Recovering/Resolving]
  - Swelling face [Unknown]
  - Pain in jaw [Unknown]
  - Gingival swelling [Unknown]
  - Gingival pain [Unknown]
  - Decreased appetite [Unknown]
  - Oral pain [Unknown]

NARRATIVE: CASE EVENT DATE: 20250331
